FAERS Safety Report 7594950-5 (Version None)
Quarter: 2011Q3

REPORT INFORMATION
  Report Type: 
  Country: None (occurrence: None)
  Receive Date: 20110707
  Receipt Date: 20110621
  Transmission Date: 20111222
  Serious: No
  Sender: FDA-Public Use
  Company Number: US-B.I. PHARMACEUTICALS,INC./RIDGEFIELD-2011-BP-14309BP

PATIENT
  Sex: Female

DRUGS (4)
  1. METOPROLOL TARTRATE [Concomitant]
  2. DIGOXIN [Concomitant]
  3. PRADAXA [Suspect]
     Indication: ATRIAL FIBRILLATION
     Dosage: 300 MG
     Route: 048
     Dates: start: 20110525
  4. SYNTHROID [Concomitant]
     Indication: HYPOTHYROIDISM

REACTIONS (2)
  - BACK PAIN [None]
  - CONSTIPATION [None]
